FAERS Safety Report 9820818 (Version 1)
Quarter: 2014Q1

REPORT INFORMATION
  Report Type: Spontaneous
  Country: US (occurrence: US)
  Receive Date: 20140116
  Receipt Date: 20140116
  Transmission Date: 20141002
  Serious: No
  Sender: FDA-Public Use
  Company Number: US-PFIZER INC-2014010329

PATIENT
  Age: 83 Year
  Sex: Male
  Weight: 94.79 kg

DRUGS (1)
  1. PROTONIX [Suspect]
     Indication: GASTROINTESTINAL HAEMORRHAGE
     Dosage: AS CONTINUOUS DRIP
     Route: 041
     Dates: start: 20140102, end: 20140108

REACTIONS (2)
  - Extravasation [Unknown]
  - Swelling [Unknown]
